FAERS Safety Report 4294515-7 (Version None)
Quarter: 2004Q1

REPORT INFORMATION
  Report Type: 
  Country: None (occurrence: None)
  Receive Date: 20040211
  Receipt Date: 20040128
  Transmission Date: 20041129
  Serious: Yes (Other)
  Sender: FDA-Public Use
  Company Number: 200400575

PATIENT
  Age: 74 Year
  Sex: Female

DRUGS (2)
  1. OFLOXACIN [Suspect]
     Indication: CONJUNCTIVITIS
     Dosage: DROP
     Dates: start: 20040113, end: 20040114
  2. IBUPROFEN [Suspect]
     Indication: PAIN
     Dosage: 200 MG DAILY PO
     Route: 048
     Dates: start: 20030610

REACTIONS (1)
  - ANAPHYLACTIC REACTION [None]
